FAERS Safety Report 22142453 (Version 7)
Quarter: 2024Q1

REPORT INFORMATION
  Report Type: Spontaneous
  Country: US (occurrence: US)
  Receive Date: 20230327
  Receipt Date: 20240220
  Transmission Date: 20240410
  Serious: No
  Sender: FDA-Public Use
  Company Number: US-PFIZER INC-202300123377

PATIENT
  Age: 10 Year
  Sex: Male
  Weight: 24.943 kg

DRUGS (3)
  1. GENOTROPIN [Suspect]
     Active Substance: SOMATROPIN
     Indication: Growth hormone deficiency
     Dosage: UNK
  2. GENOTROPIN [Suspect]
     Active Substance: SOMATROPIN
     Dosage: 1.2 UNK (DAILY DOSE WITH UNITS: 1.2; FREQUENCY: 6/WEEK)
  3. GENOTROPIN [Suspect]
     Active Substance: SOMATROPIN
     Dosage: 1.4 MG
     Dates: start: 202303

REACTIONS (3)
  - Device breakage [Unknown]
  - Device information output issue [Unknown]
  - Poor quality device used [Unknown]
